FAERS Safety Report 10053322 (Version 1)
Quarter: 2014Q2

REPORT INFORMATION
  Report Type: Report from Study
  Country: US (occurrence: US)
  Receive Date: 20140402
  Receipt Date: 20140402
  Transmission Date: 20141212
  Serious: Yes (Other)
  Sender: FDA-Public Use
  Company Number: PHEH2014US006231

PATIENT
  Sex: Female

DRUGS (1)
  1. EXELON PATCH [Suspect]
     Dosage: 9.5 MG ONCE DAILY
     Route: 062

REACTIONS (7)
  - Fall [Unknown]
  - Diverticulum [Unknown]
  - Hypertension [Unknown]
  - Dementia Alzheimer^s type [Unknown]
  - Colitis ulcerative [Unknown]
  - Open fracture [Unknown]
  - Pain [Unknown]
